FAERS Safety Report 5519209-9 (Version None)
Quarter: 2007Q4

REPORT INFORMATION
  Report Type: 
  Country: None (occurrence: None)
  Receive Date: 20071114
  Receipt Date: 20071114
  Transmission Date: 20080405
  Serious: No
  Sender: FDA-Public Use
  Company Number: None

PATIENT
  Age: 47 Year
  Sex: Male
  Weight: 88.4514 kg

DRUGS (1)
  1. DIVALPROEX SODIUM [Suspect]
     Dosage: 1500 MG/DAY PO
     Route: 048

REACTIONS (1)
  - THROMBOCYTOPENIA [None]
